FAERS Safety Report 9502873 (Version 3)
Quarter: 2013Q4

REPORT INFORMATION
  Report Type: Spontaneous
  Country: US (occurrence: None)
  Receive Date: 20130107
  Receipt Date: 20131226
  Transmission Date: 20140711
  Serious: Yes (Other)
  Sender: FDA-Public Use
  Company Number: PHEH2012US018714

PATIENT
  Age: 49 Year
  Sex: Female

DRUGS (2)
  1. GILENYA (FTY) CAPSULE, 0.5MG [Suspect]
     Indication: MULTIPLE SCLEROSIS
     Route: 048
     Dates: start: 20120904
  2. ANTIDEPRESSANTS (NO INGREDIENTS/SUBSTANCES) [Concomitant]

REACTIONS (7)
  - Laceration [None]
  - Malaise [None]
  - Depression [None]
  - Constipation [None]
  - Nausea [None]
  - Weight increased [None]
  - Diarrhoea [None]
